FAERS Safety Report 6349107-2 (Version None)
Quarter: 2009Q3

REPORT INFORMATION
  Report Type: 
  Country: None (occurrence: None)
  Receive Date: 20090911
  Receipt Date: 20090908
  Transmission Date: 20100115
  Serious: Yes (Other)
  Sender: FDA-Public Use
  Company Number: US-PFIZER INC-2004108097

PATIENT
  Sex: Female

DRUGS (12)
  1. PROVERA [Suspect]
     Indication: HORMONE REPLACEMENT THERAPY
     Dosage: UNK
     Route: 048
  2. MEDROXYPROGESTERONE AND MEDROXYPROGESTERONE ACETATE [Suspect]
     Indication: HORMONE REPLACEMENT THERAPY
     Dosage: 2.5 MG, UNK
     Route: 048
     Dates: start: 19970401, end: 19970501
  3. PREMARIN [Suspect]
     Indication: HORMONE REPLACEMENT THERAPY
     Dosage: 0.3 MG, UNK
     Dates: start: 19961101, end: 19970701
  4. PREMARIN [Suspect]
     Dosage: 0.625 MG, UNK
     Dates: start: 19970801, end: 19970901
  5. PREMARIN [Suspect]
     Dosage: 0.9 MG, UNK
     Dates: start: 19971001, end: 20000301
  6. PREMARIN [Suspect]
     Dosage: 1.25 MG, UNK
     Dates: start: 19960301, end: 19970301
  7. MEDROXYPROGESTERONE [Suspect]
     Indication: HORMONE REPLACEMENT THERAPY
     Dosage: 10 MG, UNK
     Dates: start: 19960901, end: 19970301
  8. CURRETAB [Suspect]
     Indication: HORMONE REPLACEMENT THERAPY
     Dosage: 10 MG, UNK
     Dates: start: 19960101, end: 19960801
  9. PREMPHASE 14/14 [Suspect]
     Indication: HORMONE REPLACEMENT THERAPY
     Dosage: 0.625 MG, UNK
     Dates: start: 19990301, end: 19990401
  10. ESTRADERM [Suspect]
     Indication: HORMONE REPLACEMENT THERAPY
  11. PREMPRO [Suspect]
     Indication: HORMONE REPLACEMENT THERAPY
     Dosage: 0.625/2.5 MGUNK
     Dates: start: 19970701, end: 19971101
  12. PREMPRO [Suspect]
     Dosage: 0.625/5.0 MG
     Dates: start: 19991201, end: 20000201

REACTIONS (1)
  - BREAST CANCER FEMALE [None]
